FAERS Safety Report 17146448 (Version 1)
Quarter: 2019Q4

REPORT INFORMATION
  Report Type: Spontaneous
  Country: NL (occurrence: NL)
  Receive Date: 20191212
  Receipt Date: 20191212
  Transmission Date: 20200122
  Serious: Yes (Other)
  Sender: FDA-Public Use
  Company Number: NL-MYLANLABS-2019M1121908

PATIENT
  Sex: Female
  Weight: 75 kg

DRUGS (4)
  1. COLCHICINE. [Suspect]
     Active Substance: COLCHICINE
     Indication: PERICARDITIS
     Dosage: 0.00 MILLIGRAM, QD (1DD 1 TABLET)
     Route: 048
     Dates: start: 20190224
  2. HALOPERIDOL. [Concomitant]
     Active Substance: HALOPERIDOL
     Dosage: UNK
  3. QUETIAPINE. [Concomitant]
     Active Substance: QUETIAPINE
     Dosage: UNK
  4. DEPAKINE                           /00228502/ [Suspect]
     Active Substance: VALPROATE SODIUM
     Indication: BIPOLAR I DISORDER
     Dosage: 1000 MILLIGRAM,QD(1DD 2 TABLETTEN)
     Route: 048
     Dates: start: 2004

REACTIONS (14)
  - Malaise [Unknown]
  - Hypotonia [Recovered/Resolved]
  - Weight increased [Unknown]
  - Decreased appetite [Unknown]
  - Hepatitis [Unknown]
  - Sweat gland infection [Unknown]
  - Hair colour changes [Unknown]
  - Memory impairment [Unknown]
  - Paraesthesia [Unknown]
  - Constipation [Unknown]
  - Off label use [Unknown]
  - Hyposomnia [Unknown]
  - Confusional state [Unknown]
  - Musculoskeletal discomfort [Unknown]
